FAERS Safety Report 7371033-0 (Version None)
Quarter: 2011Q1

REPORT INFORMATION
  Report Type: 
  Country: None (occurrence: None)
  Receive Date: 20110321
  Receipt Date: 20110321
  Transmission Date: 20110831
  Serious: No
  Sender: FDA-Public Use
  Company Number: None

PATIENT
  Age: 73 Year
  Sex: Female
  Weight: 75.7507 kg

DRUGS (2)
  1. LORATADINE [Suspect]
     Indication: HYPERSENSITIVITY
     Dosage: 10MG 12 HR. PO
     Route: 048
     Dates: start: 20100310, end: 20100318
  2. LORATADINE [Suspect]
     Indication: NASOPHARYNGITIS
     Dosage: 10MG 12 HR. PO
     Route: 048
     Dates: start: 20100310, end: 20100318

REACTIONS (2)
  - EAR DISCOMFORT [None]
  - EAR DISORDER [None]
